FAERS Safety Report 4313873-8 (Version None)
Quarter: 2004Q1

REPORT INFORMATION
  Report Type: 
  Country: None (occurrence: None)
  Receive Date: 20040302
  Receipt Date: 20031028
  Transmission Date: 20041129
  Serious: Yes (Life-Threatening, Hospitalization)
  Sender: FDA-Public Use
  Company Number: WAES 0310USA03117

PATIENT
  Age: 47 Year
  Sex: Male

DRUGS (4)
  1. CANCIDAS [Suspect]
     Indication: INFECTION
     Dosage: 50 MG, DAILY, IV
     Route: 042
     Dates: start: 20030924, end: 20031019
  2. PRIMAXIN [Suspect]
     Indication: INFECTION
     Dosage: 500 MG, Q8H
     Dates: start: 20030926, end: 20031019
  3. CEFEPIME [Concomitant]
  4. LEVOFLOXACIN [Concomitant]

REACTIONS (1)
  - NEUTROPENIA [None]
